FAERS Safety Report 8867415 (Version 1)
Quarter: 2012Q4

REPORT INFORMATION
  Report Type: 
  Country: US (occurrence: US)
  Receive Date: 20121025
  Receipt Date: 20121025
  Transmission Date: 20130627
  Serious: No
  Sender: FDA-Public Use
  Company Number: US-AMGEN-USASP2012016357

PATIENT
  Age: 68 Year

DRUGS (14)
  1. ENBREL [Suspect]
     Indication: PRODUCT USED FOR UNKNOWN INDICATION
     Dosage: 25 mg, qwk
     Route: 058
  2. METHOTREXATE [Concomitant]
  3. FOLIC ACID [Concomitant]
  4. POTASSIUM [Concomitant]
  5. LISINOPRIL [Concomitant]
  6. PREMARIN [Concomitant]
  7. PLAQUENIL                          /00072603/ [Concomitant]
     Dosage: 200 mg, UNK
  8. ATENOLOL [Concomitant]
     Dosage: 50 mg, UNK
  9. CELEBREX [Concomitant]
     Dosage: 100 mg, UNK
  10. SLOW MAG [Concomitant]
  11. MULTIVITAMIN                       /00097801/ [Concomitant]
  12. ASA W/CODEINE [Concomitant]
     Dosage: UNK
  13. TYLENOL ARTHRITIS [Concomitant]
     Dosage: 650 mg, UNK
  14. LISINOPRIL HCTZ [Concomitant]

REACTIONS (1)
  - Sinusitis [Unknown]
